FAERS Safety Report 24109742 (Version 1)
Quarter: 2024Q3

REPORT INFORMATION
  Report Type: Spontaneous
  Country: US (occurrence: US)
  Receive Date: 20240718
  Receipt Date: 20240718
  Transmission Date: 20241016
  Serious: Yes (Other)
  Sender: PFIZER
  Company Number: US-PFIZER INC-202400212565

PATIENT
  Age: 59 Year
  Sex: Female

DRUGS (3)
  1. XELJANZ XR [Suspect]
     Active Substance: TOFACITINIB CITRATE
     Dosage: 22 MG PER DAY ORALLY
     Route: 048
  2. ADVIL PM [DIPHENHYDRAMINE CITRATE;IBUPROFEN] [Concomitant]
     Dosage: UNK
  3. ESOMEPRAZOLE MAGNESIUM [Concomitant]
     Active Substance: ESOMEPRAZOLE MAGNESIUM
     Dosage: UNK

REACTIONS (10)
  - Pulmonary congestion [Unknown]
  - Pneumonia [Unknown]
  - White blood cell count increased [Unknown]
  - Nasopharyngitis [Unknown]
  - Upper respiratory tract infection [Not Recovered/Not Resolved]
  - Sinusitis [Not Recovered/Not Resolved]
  - Illness [Unknown]
  - Chest pain [Unknown]
  - Bowel movement irregularity [Unknown]
  - Pain [Unknown]

NARRATIVE: CASE EVENT DATE: 20240101
